FAERS Safety Report 9282430 (Version 2)
Quarter: 2013Q2

REPORT INFORMATION
  Report Type: Spontaneous
  Country: EE (occurrence: EE)
  Receive Date: 20130510
  Receipt Date: 20130510
  Transmission Date: 20140414
  Serious: Yes (Other)
  Sender: FDA-Public Use
  Company Number: EE-ROCHE-1223014

PATIENT
  Sex: Female

DRUGS (2)
  1. AVASTIN [Suspect]
     Indication: COLORECTAL CANCER
     Route: 042
  2. XELODA [Concomitant]
     Indication: COLORECTAL CANCER
     Route: 048

REACTIONS (1)
  - Arthralgia [Unknown]
